FAERS Safety Report 6988674-2 (Version None)
Quarter: 2010Q3

REPORT INFORMATION
  Report Type: 
  Country: None (occurrence: None)
  Receive Date: 20100827
  Receipt Date: 20090717
  Transmission Date: 20110219
  Serious: Yes (Other)
  Sender: FDA-Public Use
  Company Number: 2009223179

PATIENT
  Age: 48 Year
  Sex: Male
  Weight: 81.6 kg

DRUGS (17)
  1. VFEND [Suspect]
     Indication: ASPERGILLOSIS
     Dosage: 200 MG, 2X/DAY
     Dates: start: 20090101
  2. ZITHROMAX [Concomitant]
  3. ACYCLOVIR [Concomitant]
  4. TRIAZOLAM [Concomitant]
  5. BACTRIM [Concomitant]
  6. MULTIVITAMINS (ASCORBIC ACID, ERGOCALCIFEROL, FOLIC ACID, NICOTINAMIDE [Concomitant]
  7. PRILOSEC (OMEPRAZOLE) [Concomitant]
  8. RANITIDINE [Concomitant]
  9. MAGNESIUM OXIDE (MAGNESIUM OXIDE) [Concomitant]
  10. ACETAMINOPHEN [Concomitant]
  11. CALCIUM CARBONATE/COLECALCIFEROL (CALCIUM CARBONATE, COLECALCIFEROL0 [Concomitant]
  12. LOPRESSOR [Concomitant]
  13. COUMADIN [Concomitant]
  14. OXYCODONE HCL [Concomitant]
  15. CELLCEPT (MYCOPHENOLATE MOFETIL0 [Concomitant]
  16. PREDNISONE [Concomitant]
  17. PROGRAF [Concomitant]

REACTIONS (3)
  - ATAXIA [None]
  - FEELING ABNORMAL [None]
  - FEELING DRUNK [None]
